FAERS Safety Report 8045689-3 (Version None)
Quarter: 2012Q1

REPORT INFORMATION
  Report Type: 
  Country: None (occurrence: None)
  Receive Date: 20120112
  Receipt Date: 20120112
  Transmission Date: 20120608
  Serious: No
  Sender: FDA-Public Use
  Company Number: None

PATIENT
  Age: 60 Year
  Sex: Male
  Weight: 75 kg

DRUGS (2)
  1. RIBAVIRIN [Suspect]
     Indication: HEPATITIS C
     Dosage: 600 MG EVERY DAY PO
     Route: 048
  2. TELAPREVIR [Suspect]
     Indication: HEPATITIS C
     Dosage: 750 MG PO
     Route: 048
     Dates: start: 20110915, end: 20111208

REACTIONS (2)
  - PRURITUS [None]
  - URTICARIA [None]
